FAERS Safety Report 10480519 (Version 1)
Quarter: 2014Q3

REPORT INFORMATION
  Report Type: Spontaneous
  Country: US (occurrence: None)
  Receive Date: 20140926
  Receipt Date: 20140926
  Transmission Date: 20150326
  Serious: Yes (Disabling, Other)
  Sender: FDA-Public Use
  Company Number: None

PATIENT
  Age: 8 Year
  Sex: Male
  Weight: 23.59 kg

DRUGS (1)
  1. ABILIFY [Suspect]
     Active Substance: ARIPIPRAZOLE
     Dosage: 1.5 TEASOONPS?AT BEDTIME?TAKEN BY MOUTH
     Route: 048

REACTIONS (4)
  - Tremor [None]
  - Tardive dyskinesia [None]
  - Hemiparesis [None]
  - VIIth nerve paralysis [None]

NARRATIVE: CASE EVENT DATE: 20140707
